FAERS Safety Report 9664259 (Version 2)
Quarter: 2013Q4

REPORT INFORMATION
  Report Type: Report from Study
  Country: JP (occurrence: JP)
  Receive Date: 20131101
  Receipt Date: 20131101
  Transmission Date: 20140711
  Serious: Yes (Hospitalization)
  Sender: FDA-Public Use
  Company Number: JP-VERTEX PHARMACEUTICAL INC.-AE-2012-007477

PATIENT
  Age: 51 Year
  Sex: Male

DRUGS (34)
  1. VX-950 (TELAPREVIR) [Suspect]
     Indication: CHRONIC HEPATITIS C
     Dosage: 2250 MG, QD
     Route: 048
     Dates: start: 20120508, end: 20120528
  2. VX-950 (TELAPREVIR) [Suspect]
     Dosage: 2250 UNK, UNK
     Route: 048
     Dates: start: 20120529, end: 20120703
  3. VX-950 (TELAPREVIR) [Suspect]
     Dosage: 1500 UNK, UNK
     Route: 048
     Dates: start: 20120704, end: 20120730
  4. PEGINTRON [Suspect]
     Indication: CHRONIC HEPATITIS C
     Dosage: 150 ?G, QW
     Route: 058
     Dates: start: 20120508, end: 20120522
  5. PEGINTRON [Suspect]
     Dosage: 1.3 ?G/KG, QW
     Route: 058
     Dates: start: 20120529
  6. PEGINTRON [Suspect]
     Dosage: 1.28 ?G/KG, QW
     Route: 058
     Dates: start: 20120710, end: 20120814
  7. REBETOL [Suspect]
     Indication: CHRONIC HEPATITIS C
     Dosage: 1000 MG, QD
     Route: 048
     Dates: start: 20120508, end: 20120528
  8. REBETOL [Suspect]
     Dosage: 1000 UNK, UNK
     Route: 048
     Dates: start: 20120529
  9. REBETOL [Suspect]
     Dosage: 1000 UNK, UNK
     Route: 048
     Dates: start: 20120709, end: 20120710
  10. REBETOL [Suspect]
     Dosage: 600 MG, UNK
     Route: 048
     Dates: start: 20120710, end: 20120801
  11. REBETOL [Suspect]
     Dosage: 400 UNK, UNK
     Route: 048
     Dates: start: 20120802, end: 20120818
  12. REBETOL [Suspect]
     Dosage: 400 UNK, UNK
     Route: 048
     Dates: end: 20120911
  13. REBETOL [Suspect]
     Dosage: 600 UNK, UNK
     Route: 048
     Dates: start: 20120912, end: 20120918
  14. REBETOL [Suspect]
     Dosage: 800 UNK, UNK
     Route: 048
     Dates: start: 20120919, end: 20120925
  15. REBETOL [Suspect]
     Dosage: 1000 UNK, UNK
     Route: 048
     Dates: start: 20120926
  16. OLMETEC [Concomitant]
     Dosage: 40 MG, QD
     Route: 048
     Dates: end: 20120528
  17. OLMETEC [Concomitant]
     Dosage: 40 UNK, UNK
     Route: 048
  18. OLMETEC [Concomitant]
     Dosage: 10 UNK, UNK
     Route: 048
     Dates: start: 20120821, end: 20121031
  19. OLMETEC [Concomitant]
     Dosage: 5 UNK, UNK
     Route: 048
     Dates: start: 20121101, end: 20130219
  20. AMLODIPINE [Concomitant]
     Dosage: 10 MG, QD
     Route: 048
     Dates: end: 20120528
  21. AMLODIPINE [Concomitant]
     Dosage: 10 UNK, UNK
     Route: 048
  22. MYSLEE [Concomitant]
     Dosage: 10 MG, QD
     Route: 048
     Dates: end: 20120528
  23. MYSLEE [Concomitant]
     Dosage: 10 UNK, UNK
     Route: 048
  24. AMLODIN [Concomitant]
     Dosage: 5 MG, QD
     Route: 048
  25. PAXIL CR [Concomitant]
     Dosage: 12.5 MG, QD
     Route: 048
  26. ALLOPURINOL [Concomitant]
     Dosage: 300 MG, QD
     Route: 048
  27. MUCOSOLVAN L [Concomitant]
     Dosage: 45 MG, QD
     Route: 048
  28. XYZAL [Concomitant]
     Dosage: 5 MG, QD
     Route: 048
  29. XYZAL [Concomitant]
     Dosage: 5 MG, QD
     Route: 048
     Dates: start: 20120703
  30. LOXOPROFEN SODIUM [Concomitant]
     Dosage: 180 MG, QD
     Route: 048
  31. LOXOPROFEN SODIUM [Concomitant]
     Dosage: 180 MG, QD
     Route: 048
  32. LOXONIN [Concomitant]
     Dosage: 180 MG, QD
     Route: 048
     Dates: start: 20120529
  33. REBAMIPIDE [Concomitant]
     Dosage: 300 MG, QD
     Route: 048
     Dates: start: 20120529
  34. ROHYPNOL [Concomitant]
     Dosage: 2 MG, QD
     Route: 048
     Dates: end: 20120910

REACTIONS (3)
  - Malaise [Recovered/Resolved]
  - Urinary tract infection [Recovered/Resolved]
  - Hyperuricaemia [Recovered/Resolved]
